FAERS Safety Report 17049223 (Version 1)
Quarter: 2019Q4

REPORT INFORMATION
  Report Type: Spontaneous
  Country: US (occurrence: US)
  Receive Date: 20191119
  Receipt Date: 20191119
  Transmission Date: 20200122
  Serious: Yes (Hospitalization)
  Sender: FDA-Public Use
  Company Number: NVSC2019US039966

PATIENT
  Age: 62 Year
  Sex: Male

DRUGS (4)
  1. PREDNISONE. [Suspect]
     Active Substance: PREDNISONE
     Indication: PYODERMA GANGRENOSUM
     Dosage: 60 MG, QD
     Route: 065
  2. USTEKINUMAB [Suspect]
     Active Substance: USTEKINUMAB
     Indication: PYODERMA GANGRENOSUM
     Dosage: UNK
     Route: 065
  3. IMMUNOGLOBULIN [IMMUNOGLOBULINS NOS] [Suspect]
     Active Substance: IMMUNE GLOBULIN NOS
     Indication: PYODERMA GANGRENOSUM
     Dosage: 200 MG/KG (ONE DOSE)
     Route: 042
  4. CYCLOSPORINE. [Suspect]
     Active Substance: CYCLOSPORINE
     Indication: PYODERMA GANGRENOSUM
     Dosage: 200 MG, QD
     Route: 065

REACTIONS (5)
  - Sporotrichosis [Unknown]
  - Pneumonia [Unknown]
  - Product use in unapproved indication [Unknown]
  - Deep vein thrombosis [Unknown]
  - Pneumocystis jirovecii pneumonia [Unknown]
